FAERS Safety Report 13108401 (Version 1)
Quarter: 2017Q1

REPORT INFORMATION
  Report Type: Spontaneous
  Country: US (occurrence: US)
  Receive Date: 20170112
  Receipt Date: 20170112
  Transmission Date: 20170428
  Serious: Yes (Hospitalization)
  Sender: FDA-Public Use
  Company Number: None

PATIENT
  Age: 50 Year
  Sex: Male
  Weight: 101.9 kg

DRUGS (2)
  1. DOXORUBICIN HYDROCLORIDE [Suspect]
     Active Substance: DOXORUBICIN HYDROCHLORIDE
     Dates: end: 20161220
  2. IFOSFAMIDE. [Suspect]
     Active Substance: IFOSFAMIDE
     Dates: end: 20161221

REACTIONS (6)
  - Night sweats [None]
  - Cough [None]
  - Anaemia [None]
  - Rhinorrhoea [None]
  - Pyrexia [None]
  - Hyponatraemia [None]

NARRATIVE: CASE EVENT DATE: 20170102
